FAERS Safety Report 9879971 (Version 2)
Quarter: 2014Q1

REPORT INFORMATION
  Report Type: Spontaneous
  Country: US (occurrence: US)
  Receive Date: 20140207
  Receipt Date: 20140207
  Transmission Date: 20141002
  Serious: No
  Sender: FDA-Public Use
  Company Number: US-B.I. PHARMACEUTICALS,INC./RIDGEFIELD-2011-BP-10735BP

PATIENT
  Age: 73 Year
  Sex: Female
  Weight: 76 kg

DRUGS (4)
  1. PRADAXA [Suspect]
     Indication: THROMBOSIS
     Dosage: 300 MG
     Route: 048
     Dates: start: 2011
  2. CALAN SR [Concomitant]
     Indication: HYPERTENSION
  3. NASONEX [Concomitant]
     Indication: SINUS CONGESTION
  4. MECLIZINE [Concomitant]
     Indication: VERTIGO

REACTIONS (3)
  - Dyspepsia [Not Recovered/Not Resolved]
  - Off label use [Unknown]
  - Dysuria [Not Recovered/Not Resolved]
